FAERS Safety Report 9999821 (Version 4)
Quarter: 2014Q2

REPORT INFORMATION
  Report Type: Report from Study
  Country: US (occurrence: US)
  Receive Date: 20140312
  Receipt Date: 20140505
  Transmission Date: 20141212
  Serious: Yes (Hospitalization)
  Sender: FDA-Public Use
  Company Number: US-PFIZER INC-2014025991

PATIENT
  Age: 64 Year
  Sex: Female
  Weight: 75.2 kg

DRUGS (23)
  1. DACOMITINIB [Suspect]
     Indication: NON-SMALL CELL LUNG CANCER
     Dosage: 45 MG, DAILY CONTINUOUS
     Route: 048
     Dates: start: 20131218, end: 20140114
  2. ALCLOMETASONE DIPROPIONATE [Suspect]
     Indication: NON-SMALL CELL LUNG CANCER
     Dosage: 1 APPLICATION, ONCE DAILY
     Route: 061
     Dates: start: 20131218, end: 20140114
  3. BIFIDOBACTERIUM BREVE/BIFIDOBACTERIUM INFANTIS/BIFIDOBACTERIUM LONGUM/LACTOBACILLUS ACIDOPHILUS/LACT [Suspect]
     Indication: NON-SMALL CELL LUNG CANCER
     Dosage: 4 CAPSULES, ONCE DAILY
     Route: 048
     Dates: start: 20131211, end: 20140114
  4. MORPHINE SULFATE [Suspect]
     Indication: PAIN
     Dosage: 30 MG, BID
     Route: 048
     Dates: start: 20130709, end: 20140202
  5. ALBUTEROL [Concomitant]
     Indication: CHRONIC OBSTRUCTIVE PULMONARY DISEASE
     Dosage: UNK
     Dates: start: 20130603
  6. AZELASTINE [Concomitant]
     Indication: RHINITIS
     Dosage: UNK
     Dates: start: 20120105
  7. OPTIVAR [Concomitant]
     Indication: CONJUNCTIVITIS
     Dosage: UNK
     Dates: start: 20120105
  8. GABAPENTIN [Concomitant]
     Indication: PAIN
     Dosage: UNK
     Dates: start: 20131115
  9. MELOXICAM [Concomitant]
     Indication: OSTEOARTHRITIS
     Dosage: UNK
     Dates: start: 20130624
  10. MIRTAZAPINE [Concomitant]
     Indication: ANXIETY
     Dosage: UNK
     Dates: start: 20130829
  11. OMEPRAZOLE [Concomitant]
     Indication: REFLUX LARYNGITIS
     Dosage: UNK
     Dates: start: 20110920
  12. ONDANSETRON [Concomitant]
     Indication: PROPHYLAXIS OF NAUSEA AND VOMITING
     Dosage: UNK
     Dates: start: 20130726
  13. PROCHLORPERAZINE [Concomitant]
     Indication: PROPHYLAXIS OF NAUSEA AND VOMITING
     Dosage: UNK
     Dates: start: 20131107
  14. SODIUM CHLORIDE [Concomitant]
     Indication: CHRONIC OBSTRUCTIVE PULMONARY DISEASE
     Dosage: NEBULIZER SOLUTION
     Dates: start: 20130613
  15. IBUPROFEN [Concomitant]
     Indication: PAIN
     Dosage: UNK
     Dates: start: 20131120
  16. CALCIUM WITH VITAMIN D [Concomitant]
     Indication: NUTRITIONAL SUPPLEMENTATION
     Dosage: UNK
     Dates: start: 20131211
  17. VITAMIN D [Concomitant]
     Indication: NUTRITIONAL SUPPLEMENTATION
     Dosage: UNK
     Dates: start: 20131211
  18. DOCUSATE SODIUM [Concomitant]
     Indication: CONSTIPATION
     Dosage: UNK
     Dates: start: 20131216
  19. POLYETHYLENE GLYCOL [Concomitant]
     Indication: CONSTIPATION
     Dosage: UNK
     Dates: start: 20131218
  20. MAGIC MOUTHWASH [Concomitant]
     Indication: STOMATITIS
     Dosage: UNK
     Dates: start: 20140108
  21. NORMAL SALINE [Concomitant]
     Indication: DEHYDRATION
     Dosage: UNK
     Dates: start: 20140115, end: 20140115
  22. LORAZEPAM [Concomitant]
     Indication: ANXIETY
     Dosage: UNK
     Dates: start: 20140115
  23. VINORELBINE [Concomitant]
     Indication: LUNG NEOPLASM MALIGNANT
     Dosage: UNK
     Dates: start: 20140124

REACTIONS (2)
  - Pneumonia [Recovered/Resolved]
  - Hydronephrosis [Recovered/Resolved]
